FAERS Safety Report 7265545-8 (Version None)
Quarter: 2011Q1

REPORT INFORMATION
  Report Type: 
  Country: None (occurrence: None)
  Receive Date: 20110119
  Receipt Date: 20110110
  Transmission Date: 20110831
  Serious: Yes (Death, Hospitalization)
  Sender: FDA-Public Use
  Company Number: 2010SP063438

PATIENT
  Age: 80 Year
  Sex: Female

DRUGS (10)
  1. HYDROCODONE BITRATE AND ACETAMINOPHEN [Concomitant]
  2. ACETYLSALICYLIC ACID [Concomitant]
  3. CALCIUM CARBONATE [Concomitant]
  4. FLECAINIDE ACETATE [Concomitant]
  5. DOCUSATE SODIUM [Concomitant]
  6. MULTI-VITAMIN [Concomitant]
  7. TEMOZOLOMIDE [Suspect]
     Indication: GLIOBLASTOMA MULTIFORME
     Dosage: 250 MG; QD; IV
     Route: 042
     Dates: start: 20100928, end: 20101002
  8. METOCLOPRAMIDE HYDROCHLORIDE [Concomitant]
  9. ONDANSETRON /00955302/ [Concomitant]
  10. MALTODEXTRIN [Concomitant]

REACTIONS (9)
  - CONSTIPATION [None]
  - HALLUCINATION [None]
  - CEREBRAL HAEMORRHAGE [None]
  - MYOPATHY [None]
  - UNRESPONSIVE TO STIMULI [None]
  - CONVULSION [None]
  - THROMBOCYTOPENIA [None]
  - DYSPHAGIA [None]
  - INCONTINENCE [None]
